FAERS Safety Report 9220649 (Version 1)
Quarter: 2013Q2

REPORT INFORMATION
  Report Type: Spontaneous
  Country: NZ (occurrence: NZ)
  Receive Date: 20130409
  Receipt Date: 20130409
  Transmission Date: 20140414
  Serious: Yes (Other)
  Sender: FDA-Public Use
  Company Number: NZ-BRISTOL-MYERS SQUIBB COMPANY-18760397

PATIENT
  Age: 75 Year
  Sex: Male

DRUGS (11)
  1. METFORMIN HCL TABS [Suspect]
     Route: 048
     Dates: start: 2005, end: 20130304
  2. LOSARTAN POTASSIUM [Suspect]
     Dates: start: 20120925, end: 20130304
  3. PANTOPRAZOLE [Concomitant]
     Dates: start: 20110803
  4. ASPIRIN [Concomitant]
     Dates: start: 20110715
  5. ATORVASTATIN [Concomitant]
     Dates: start: 20110715
  6. GLYCERYL TRINITRATE [Concomitant]
     Dates: start: 20110728
  7. SILDENAFIL [Concomitant]
     Dates: start: 20120214
  8. AMLODIPINE BESYLATE [Concomitant]
     Dates: start: 20120920
  9. DICLOFENAC SODIUM [Concomitant]
     Dates: start: 20120925
  10. DIPYRIDAMOLE [Concomitant]
     Dates: start: 20130127
  11. METOPROLOL [Concomitant]
     Dosage: 15JUL-28JUL2011:23.75 MG.29JUL11-ONG:47.5MG
     Dates: start: 20110715

REACTIONS (1)
  - Blood creatinine increased [Recovered/Resolved]
